FAERS Safety Report 11231222 (Version 2)
Quarter: 2015Q3

REPORT INFORMATION
  Report Type: Spontaneous
  Country: JP (occurrence: JP)
  Receive Date: 20150701
  Receipt Date: 20150715
  Transmission Date: 20151125
  Serious: Yes (Other)
  Sender: FDA-Public Use
  Company Number: JP-MYLANLABS-2015M1020888

PATIENT

DRUGS (1)
  1. VANCOMYCIN POWDER 0.5G ^MYLAN^ [Suspect]
     Active Substance: VANCOMYCIN
     Indication: CLOSTRIDIUM DIFFICILE COLITIS
     Dosage: 2 WEEKS
     Route: 048

REACTIONS (1)
  - Drug ineffective [Unknown]
